APPROVED DRUG PRODUCT: DECABID
Active Ingredient: INDECAINIDE HYDROCHLORIDE
Strength: EQ 75MG BASE
Dosage Form/Route: TABLET, EXTENDED RELEASE;ORAL
Application: N019693 | Product #002
Applicant: ELI LILLY AND CO
Approved: Dec 29, 1989 | RLD: No | RS: No | Type: DISCN